FAERS Safety Report 10278486 (Version 1)
Quarter: 2014Q3

REPORT INFORMATION
  Report Type: Spontaneous
  Country: IE (occurrence: IE)
  Receive Date: 20140704
  Receipt Date: 20140704
  Transmission Date: 20150326
  Serious: Yes (Death)
  Sender: FDA-Public Use
  Company Number: IE-AMGEN INC.-IRLSP2014049813

PATIENT
  Age: 52 Year
  Sex: Male

DRUGS (8)
  1. FRUMIL [Concomitant]
     Active Substance: AMILORIDE HYDROCHLORIDE\FUROSEMIDE
     Dosage: UNK
  2. CIPROXIN                           /00697201/ [Concomitant]
     Dosage: UNK
  3. ALLOPURINOL. [Concomitant]
     Active Substance: ALLOPURINOL
     Dosage: UNK
  4. NEULASTA [Suspect]
     Active Substance: PEGFILGRASTIM
     Indication: NASOPHARYNGEAL CANCER
     Dosage: 6MG/0.6ML POST CHEMO EVERY THREE WEEKS
     Route: 058
     Dates: start: 20130121
  5. KIN [Concomitant]
     Dosage: UNK
  6. ZOFRAN                             /00955301/ [Concomitant]
     Active Substance: ONDANSETRON HYDROCHLORIDE
     Dosage: UNK
  7. ZANIDIP [Concomitant]
     Active Substance: LERCANIDIPINE HYDROCHLORIDE
     Dosage: UNK
  8. MYCOSTATIN [Concomitant]
     Active Substance: NYSTATIN
     Dosage: UNK

REACTIONS (1)
  - Death [Fatal]
